FAERS Safety Report 16186908 (Version 1)
Quarter: 2019Q2

REPORT INFORMATION
  Report Type: Report from Study
  Country: US (occurrence: US)
  Receive Date: 20190411
  Receipt Date: 20190411
  Transmission Date: 20190711
  Serious: Yes (Other)
  Sender: FDA-Public Use
  Company Number: US-SHIRE-US201911413

PATIENT
  Sex: Male

DRUGS (1)
  1. HUMAN IMMUNOGLOBULIN; HYALURONIDASE [Suspect]
     Active Substance: HUMAN IMMUNOGLOBULIN G\HYALURONIDASE RECOMBINANT HUMAN
     Indication: PRIMARY IMMUNODEFICIENCY SYNDROME
     Dosage: 60 GRAM
     Route: 058

REACTIONS (7)
  - Sleep disorder [Unknown]
  - Road traffic accident [Unknown]
  - Asthenia [Unknown]
  - Fatigue [Unknown]
  - Bronchitis [Recovering/Resolving]
  - Infusion site pain [Unknown]
  - Abdominal distension [Unknown]
